FAERS Safety Report 7785060-2 (Version None)
Quarter: 2011Q3

REPORT INFORMATION
  Report Type: 
  Country: None (occurrence: None)
  Receive Date: 20110929
  Receipt Date: 20110920
  Transmission Date: 20111222
  Serious: Yes (Hospitalization)
  Sender: FDA-Public Use
  Company Number: US-BIOGENIDEC-2011BI033505

PATIENT
  Age: 48 Year
  Sex: Male
  Weight: 95 kg

DRUGS (12)
  1. NAPROSYN [Concomitant]
     Indication: PAIN
     Dates: start: 20110210
  2. ACETAMENOPHEN [Concomitant]
     Indication: PROCEDURAL PAIN
     Dates: start: 20100326, end: 20101026
  3. ACETAMENOPHEN [Concomitant]
     Route: 048
     Dates: start: 20110326, end: 20110326
  4. LISINOPRIL [Concomitant]
     Indication: HYPERTENSION
     Dates: start: 20101019
  5. AVONEX [Suspect]
     Indication: MULTIPLE SCLEROSIS
     Dates: start: 20101026, end: 20110407
  6. NAPROSYN [Concomitant]
  7. ACETAMENOPHEN [Concomitant]
     Indication: PROPHYLAXIS
     Dates: start: 20100326, end: 20101026
  8. ACETAMENOPHEN [Concomitant]
     Route: 048
     Dates: start: 20110326, end: 20110326
  9. MULTIVITE [Concomitant]
     Indication: ROUTINE HEALTH MAINTENANCE
     Dates: start: 20020101
  10. AVONEX [Suspect]
     Dates: start: 20110509
  11. OMEGA 3 FATTY ACIDS [Concomitant]
     Dates: start: 20090101
  12. HYDROCORTISONE [Concomitant]
     Indication: PROCTALGIA
     Route: 054
     Dates: start: 20110325, end: 20110326

REACTIONS (1)
  - PERIRECTAL ABSCESS [None]
